FAERS Safety Report 12486193 (Version 1)
Quarter: 2016Q2

REPORT INFORMATION
  Report Type: Spontaneous
  Country: US (occurrence: US)
  Receive Date: 20160621
  Receipt Date: 20160621
  Transmission Date: 20160815
  Serious: Yes (Disabling)
  Sender: FDA-Public Use
  Company Number: US-CELGENEUS-USA-2016063094

PATIENT
  Sex: Female

DRUGS (5)
  1. REVLIMID [Suspect]
     Active Substance: LENALIDOMIDE
     Indication: PLASMA CELL MYELOMA
     Route: 048
     Dates: start: 201007
  2. NINLARO [Suspect]
     Active Substance: IXAZOMIB
     Indication: PRODUCT USED FOR UNKNOWN INDICATION
     Route: 065
     Dates: start: 201605
  3. REVLIMID [Suspect]
     Active Substance: LENALIDOMIDE
     Dosage: 25-10 MG
     Route: 048
     Dates: start: 201211
  4. REVLIMID [Suspect]
     Active Substance: LENALIDOMIDE
     Route: 048
     Dates: start: 201604
  5. REVLIMID [Suspect]
     Active Substance: LENALIDOMIDE
     Dosage: 25-15 MG
     Route: 048
     Dates: start: 201401

REACTIONS (2)
  - Diarrhoea [Not Recovered/Not Resolved]
  - Fatigue [Not Recovered/Not Resolved]
